FAERS Safety Report 18776412 (Version 1)
Quarter: 2021Q1

REPORT INFORMATION
  Report Type: Report from Study
  Country: US (occurrence: US)
  Receive Date: 20210122
  Receipt Date: 20210122
  Transmission Date: 20210419
  Serious: Yes (Death)
  Sender: FDA-Public Use
  Company Number: US-ASTRAZENECA-2021A010619

PATIENT
  Age: 32562 Day
  Sex: Female
  Weight: 92.5 kg

DRUGS (1)
  1. CALQUENCE [Suspect]
     Active Substance: ACALABRUTINIB
     Indication: CHRONIC LYMPHOCYTIC LEUKAEMIA
     Route: 048
     Dates: start: 20181121, end: 20210113

REACTIONS (1)
  - Death [Fatal]

NARRATIVE: CASE EVENT DATE: 20210113
